FAERS Safety Report 6517578-4 (Version None)
Quarter: 2009Q4

REPORT INFORMATION
  Report Type: 
  Country: None (occurrence: None)
  Receive Date: 20091224
  Receipt Date: 20091214
  Transmission Date: 20100525
  Serious: Yes (Hospitalization)
  Sender: FDA-Public Use
  Company Number: PHHY2009NZ46415

PATIENT
  Sex: Female

DRUGS (3)
  1. TASIGNA [Suspect]
     Indication: CHRONIC MYELOID LEUKAEMIA
     Dosage: 200 MG/DAY
     Dates: start: 20080709
  2. TASIGNA [Suspect]
     Dosage: 200 MG DAILY
     Route: 048
  3. VENLAFAXINE [Concomitant]
     Indication: DEPRESSION
     Dosage: UNK
     Dates: start: 20061213

REACTIONS (6)
  - BILIARY ADENOMA [None]
  - ENDOSCOPIC RETROGRADE CHOLANGIOPANCREATOGRAPHY [None]
  - LIVER FUNCTION TEST ABNORMAL [None]
  - NEOPLASM MALIGNANT [None]
  - STENT PLACEMENT [None]
  - TUMOUR EXCISION [None]
